APPROVED DRUG PRODUCT: GENTAMICIN SULFATE
Active Ingredient: GENTAMICIN SULFATE
Strength: EQ 80MG BASE/100ML
Dosage Form/Route: INJECTABLE;INJECTION
Application: A062413 | Product #008
Applicant: ABBOTT LABORATORIES PHARMACEUTICAL PRODUCTS DIV
Approved: Aug 11, 1983 | RLD: No | RS: No | Type: DISCN